FAERS Safety Report 23998861 (Version 2)
Quarter: 2024Q2

REPORT INFORMATION
  Report Type: Spontaneous
  Country: US (occurrence: US)
  Receive Date: 20240621
  Receipt Date: 20240621
  Transmission Date: 20240716
  Serious: Yes (Other)
  Sender: FDA-Public Use
  Company Number: US-ROCHE-10000003220

PATIENT

DRUGS (2)
  1. BEVACIZUMAB [Suspect]
     Active Substance: BEVACIZUMAB
     Indication: Hepatocellular carcinoma
     Dosage: DID NOT MENTION BUT ASSUMING THE STD HCC DOSE OF 15 MG/KG EVERY 3 WEEKS
     Route: 065
  2. ATEZOLIZUMAB [Suspect]
     Active Substance: ATEZOLIZUMAB
     Indication: Hepatocellular carcinoma
     Dosage: NOT MENTIONED BUT ASSUMING THE STD DOSE FOR HCC OF 1200 MG EVERY 3 WEEKS
     Route: 065

REACTIONS (2)
  - Gastric perforation [Unknown]
  - Fistula [Unknown]
